FAERS Safety Report 25256963 (Version 1)
Quarter: 2025Q2

REPORT INFORMATION
  Report Type: Spontaneous
  Country: US (occurrence: US)
  Receive Date: 20250430
  Receipt Date: 20250430
  Transmission Date: 20250716
  Serious: Yes (Other)
  Sender: VIIV
  Company Number: US-VIIV HEALTHCARE-US2025049873

PATIENT

DRUGS (4)
  1. CABENUVA [Suspect]
     Active Substance: CABOTEGRAVIR\RILPIVIRINE
     Indication: HIV infection
     Dates: start: 202305, end: 20250404
  2. CABENUVA [Suspect]
     Active Substance: CABOTEGRAVIR\RILPIVIRINE
  3. CABENUVA [Suspect]
     Active Substance: CABOTEGRAVIR\RILPIVIRINE
  4. ATORVASTATIN [Concomitant]
     Active Substance: ATORVASTATIN
     Indication: Blood cholesterol

REACTIONS (3)
  - Metabolic dysfunction-associated steatohepatitis [Unknown]
  - Hypertriglyceridaemia [Not Recovered/Not Resolved]
  - Hepatic steatosis [Unknown]

NARRATIVE: CASE EVENT DATE: 20250401
